FAERS Safety Report 10889591 (Version 3)
Quarter: 2015Q2

REPORT INFORMATION
  Report Type: Spontaneous
  Country: US (occurrence: US)
  Receive Date: 20150305
  Receipt Date: 20150401
  Transmission Date: 20150821
  Serious: No
  Sender: FDA-Public Use
  Company Number: US-GLAXOSMITHKLINE-US2015GSK029641

PATIENT
  Age: 54 Year
  Sex: Male

DRUGS (2)
  1. VOTRIENT [Suspect]
     Active Substance: PAZOPANIB HYDROCHLORIDE
     Indication: RENAL CANCER
     Dosage: 200 MG, UNK
     Dates: start: 20150225
  2. VOTRIENT [Suspect]
     Active Substance: PAZOPANIB HYDROCHLORIDE
     Dosage: 800 MG, QD
     Route: 048

REACTIONS (6)
  - Hypoaesthesia [Unknown]
  - Dizziness [Unknown]
  - Blood pressure increased [Recovered/Resolved]
  - Hyperhidrosis [Unknown]
  - Back pain [Unknown]
  - Hot flush [Unknown]

NARRATIVE: CASE EVENT DATE: 20150225
